FAERS Safety Report 6151903-1 (Version None)
Quarter: 2009Q2

REPORT INFORMATION
  Report Type: 
  Country: None (occurrence: None)
  Receive Date: 20090410
  Receipt Date: 20090407
  Transmission Date: 20091009
  Serious: Yes (Life-Threatening, Hospitalization)
  Sender: FDA-Public Use
  Company Number: CA-MERCK-0903CAN00062

PATIENT
  Age: 49 Year
  Sex: Male
  Weight: 92 kg

DRUGS (1)
  1. HYZAAR [Suspect]
     Indication: ESSENTIAL HYPERTENSION
     Route: 048
     Dates: start: 20090107, end: 20090311

REACTIONS (3)
  - ACUTE MYOCARDIAL INFARCTION [None]
  - IMPAIRED FASTING GLUCOSE [None]
  - WHITE BLOOD CELL COUNT ABNORMAL [None]
